FAERS Safety Report 8560873-8 (Version None)
Quarter: 2012Q3

REPORT INFORMATION
  Report Type: 
  Country: None (occurrence: None)
  Receive Date: 20120802
  Receipt Date: 20120719
  Transmission Date: 20120928
  Serious: Yes (Life-Threatening, Hospitalization, Congenital Anomaly, Other)
  Sender: FDA-Public Use
  Company Number: DE-MYLANLABS-2012S1014696

PATIENT
  Age: 0 Year
  Sex: Male
  Weight: 2 kg

DRUGS (3)
  1. VENLAFAXINE [Suspect]
     Dosage: 150 [MG/D ]/ REDUCED UNTIL GW 26, THEN STOP OF TREATMENT
     Route: 064
  2. CITALOPRAM HYDROBROMIDE [Suspect]
     Dosage: 40 [MG/D ]
     Route: 064
  3. FOLIC ACID [Concomitant]
     Route: 064

REACTIONS (12)
  - PREMATURE BABY [None]
  - ATRIAL SEPTAL DEFECT [None]
  - LONG QT SYNDROME [None]
  - NEONATAL RESPIRATORY DISTRESS SYNDROME [None]
  - PATENT DUCTUS ARTERIOSUS [None]
  - HAEMANGIOMA CONGENITAL [None]
  - TEMPERATURE REGULATION DISORDER [None]
  - BRADYCARDIA NEONATAL [None]
  - CEREBRAL HAEMORRHAGE [None]
  - FEEDING DISORDER [None]
  - SUPRAVENTRICULAR EXTRASYSTOLES [None]
  - MATERNAL EXPOSURE DURING PREGNANCY [None]
